FAERS Safety Report 25508695 (Version 1)
Quarter: 2025Q3

REPORT INFORMATION
  Report Type: Report from Study
  Country: EU (occurrence: EU)
  Receive Date: 20250703
  Receipt Date: 20250703
  Transmission Date: 20251021
  Serious: Yes (Other)
  Sender: ROCHE
  Company Number: EU-ROCHE-10000326770

PATIENT

DRUGS (1)
  1. RITUXIMAB [Suspect]
     Active Substance: RITUXIMAB
     Indication: Immunoglobulin G4 related disease
     Route: 065

REACTIONS (6)
  - Urticaria [Unknown]
  - Pneumonia [Unknown]
  - Neutropenia [Unknown]
  - Hypogammaglobulinaemia [Unknown]
  - Lung adenocarcinoma [Unknown]
  - Asthenia [Unknown]
